FAERS Safety Report 8762055 (Version 1)
Quarter: 2012Q4

REPORT INFORMATION
  Report Type: 
  Country: US (occurrence: US)
  Receive Date: 20120829
  Receipt Date: 20120829
  Transmission Date: 20130627
  Serious: Yes (Other)
  Sender: FDA-Public Use
  Company Number: US-PFIZER INC-2012211242

PATIENT
  Age: 45 Year
  Sex: Female

DRUGS (2)
  1. LIPITOR [Suspect]
     Indication: BLOOD CHOLESTEROL INCREASED
     Dosage: 40mg every other day
     Dates: start: 1997
  2. PROVENTIL [Concomitant]
     Indication: ASTHMA
     Dosage: UNK, as needed

REACTIONS (1)
  - Diabetes mellitus [Unknown]
